FAERS Safety Report 10188028 (Version 1)
Quarter: 2014Q2

REPORT INFORMATION
  Report Type: Spontaneous
  Country: US (occurrence: US)
  Receive Date: 20140522
  Receipt Date: 20140522
  Transmission Date: 20141212
  Serious: No
  Sender: FDA-Public Use
  Company Number: US-SA-2013SA094764

PATIENT
  Age: 73 Year
  Sex: Male

DRUGS (3)
  1. LANTUS SOLOSTAR [Suspect]
     Dosage: DOSE:30 UNIT(S)
     Route: 058
  2. SOLOSTAR [Concomitant]
  3. NOVOLOG [Concomitant]

REACTIONS (3)
  - Visual acuity reduced [Unknown]
  - Blood glucose abnormal [Unknown]
  - Incorrect dose administered [Unknown]
